FAERS Safety Report 9527634 (Version 1)
Quarter: 2013Q1

REPORT INFORMATION
  Report Type: Spontaneous
  Country: US (occurrence: None)
  Receive Date: 20130314
  Receipt Date: 20130314
  Transmission Date: 20140127
  Serious: No
  Sender: FDA-Public Use
  Company Number: 1212USA003280

PATIENT
  Age: 49 Year
  Sex: Male

DRUGS (3)
  1. PEG-INTRON [Suspect]
     Indication: HEPATITIS C
     Dosage: REDIPEN
     Dates: start: 20121108
  2. RIBAVIRIN [Suspect]
     Indication: HEPATITIS C
     Dosage: UNK, ORAL
     Route: 048
     Dates: start: 20121108
  3. VICTRELIS [Suspect]
     Indication: HEPATITIS C
     Dosage: UNK
     Dates: start: 20121206

REACTIONS (10)
  - Myalgia [None]
  - Headache [None]
  - Pain [None]
  - Somnolence [None]
  - Injection site reaction [None]
  - Dysgeusia [None]
  - Decreased appetite [None]
  - Weight decreased [None]
  - Nausea [None]
  - Fatigue [None]
